FAERS Safety Report 10424756 (Version 1)
Quarter: 2014Q3

REPORT INFORMATION
  Report Type: Report from Study
  Country: US (occurrence: US)
  Receive Date: 20140902
  Receipt Date: 20140902
  Transmission Date: 20150326
  Serious: Yes (Other)
  Sender: FDA-Public Use
  Company Number: US-SA-2014SA116393

PATIENT
  Sex: Female

DRUGS (1)
  1. AUBAGIO [Suspect]
     Active Substance: TERIFLUNOMIDE
     Route: 048
     Dates: start: 20130929, end: 20140731

REACTIONS (4)
  - Drug dose omission [Unknown]
  - Eyelid cyst [Unknown]
  - Intracranial aneurysm [Unknown]
  - Headache [Unknown]
